FAERS Safety Report 5201501-9 (Version None)
Quarter: 2007Q1

REPORT INFORMATION
  Report Type: 
  Country: None (occurrence: None)
  Receive Date: 20070104
  Receipt Date: 20061219
  Transmission Date: 20070707
  Serious: Yes (Hospitalization)
  Sender: FDA-Public Use
  Company Number: T06-GER-05321-01

PATIENT
  Age: 53 Year
  Sex: Female
  Weight: 70 kg

DRUGS (5)
  1. CIPRALEX (ESCITALOPRAM) [Suspect]
     Indication: ANXIETY DISORDER
     Dosage: 10 MG QD PO
     Route: 048
     Dates: start: 20060627
  2. CIPRALEX (ESCITALOPRAM) [Suspect]
     Indication: CYCLOTHYMIC DISORDER
     Dosage: 10 MG QD PO
     Route: 048
     Dates: start: 20060627
  3. CIPRALEX (ESCITALOPRAM) [Suspect]
     Indication: DEPRESSED MOOD
     Dosage: 10 MG QD PO
     Route: 048
     Dates: start: 20060627
  4. CIPRALEX (ESCITALOPRAM) [Suspect]
     Indication: DISEASE RECURRENCE
     Dosage: 10 MG QD PO
     Route: 048
     Dates: start: 20060627
  5. METFORMIN [Concomitant]

REACTIONS (1)
  - DEPRESSION [None]
